FAERS Safety Report 25633300 (Version 1)
Quarter: 2025Q3

REPORT INFORMATION
  Report Type: Spontaneous
  Country: GB (occurrence: GB)
  Receive Date: 20250801
  Receipt Date: 20250801
  Transmission Date: 20251020
  Serious: Yes (Other)
  Sender: AMGEN
  Company Number: GB-AMGEN-GBRSP2025149280

PATIENT

DRUGS (2)
  1. ADALIMUMAB [Suspect]
     Active Substance: ADALIMUMAB
     Indication: Product used for unknown indication
     Route: 065
  2. ADALIMUMAB [Suspect]
     Active Substance: ADALIMUMAB
     Route: 065

REACTIONS (8)
  - Crohn^s disease [Unknown]
  - Pneumonia [Unknown]
  - Pericarditis [Unknown]
  - Immune system disorder [Unknown]
  - Illness [Unknown]
  - Bronchitis [Unknown]
  - Sinusitis [Unknown]
  - Device difficult to use [Unknown]
